FAERS Safety Report 20688872 (Version 1)
Quarter: 2022Q2

REPORT INFORMATION
  Report Type: Spontaneous
  Country: US (occurrence: US)
  Receive Date: 20220408
  Receipt Date: 20220408
  Transmission Date: 20220721
  Serious: Yes (Hospitalization, Other)
  Sender: FDA-Public Use
  Company Number: US-SANOFI-01045340

PATIENT
  Sex: Female

DRUGS (7)
  1. ADMELOG [Suspect]
     Active Substance: INSULIN LISPRO
     Indication: Type 2 diabetes mellitus
     Dates: start: 20220314
  2. LIPITOR [Concomitant]
     Active Substance: ATORVASTATIN CALCIUM
  3. ASPIRIN [Concomitant]
     Active Substance: ASPIRIN
  4. MECLIZINE [Concomitant]
     Active Substance: MECLIZINE HYDROCHLORIDE
  5. TRESIBA [Concomitant]
     Active Substance: INSULIN DEGLUDEC
     Dosage: 25 UNITS
  6. HUMALOG [Concomitant]
     Active Substance: INSULIN LISPRO
  7. PLAVIX [Concomitant]
     Active Substance: CLOPIDOGREL BISULFATE

REACTIONS (8)
  - Cerebrovascular accident [Unknown]
  - Facial paresis [Unknown]
  - Swelling [Unknown]
  - Dizziness [Unknown]
  - Tinnitus [Unknown]
  - Pollakiuria [Unknown]
  - Weight decreased [Unknown]
  - Blood glucose increased [Unknown]
